FAERS Safety Report 20044785 (Version 1)
Quarter: 2021Q4

REPORT INFORMATION
  Report Type: Other
  Country: US (occurrence: None)
  Receive Date: 20211108
  Receipt Date: 20211108
  Transmission Date: 20220303
  Serious: No
  Sender: FDA-Public Use
  Company Number: US-ROCHE-2949967

PATIENT
  Sex: Female

DRUGS (1)
  1. OCREVUS [Suspect]
     Active Substance: OCRELIZUMAB
     Indication: Multiple sclerosis
     Dosage: DATE OF TREATMENT: 27/FEB/2019, 21/AUG/2019, 05/MAR/2020, 12/OCT/2020, 12/APR/2021,
     Route: 065
     Dates: start: 20190213

REACTIONS (1)
  - COVID-19 [Not Recovered/Not Resolved]
